FAERS Safety Report 23893269 (Version 2)
Quarter: 2024Q3

REPORT INFORMATION
  Report Type: Report from Study
  Country: US (occurrence: US)
  Receive Date: 20240524
  Receipt Date: 20240807
  Transmission Date: 20241017
  Serious: No
  Sender: ARGENX BVBA
  Company Number: US-ARGENX-2024-ARGX-US003516

PATIENT

DRUGS (1)
  1. EFGARTIGIMOD ALFA-FCAB [Suspect]
     Active Substance: EFGARTIGIMOD ALFA-FCAB
     Indication: Myasthenia gravis
     Route: 042

REACTIONS (2)
  - Myasthenia gravis [Unknown]
  - Therapy interrupted [Unknown]
